FAERS Safety Report 8465752 (Version 3)
Quarter: 2013Q2

REPORT INFORMATION
  Report Type: Report from Study
  Country: TR (occurrence: TR)
  Receive Date: 20120319
  Receipt Date: 20130610
  Transmission Date: 20140414
  Serious: Yes (Hospitalization, Other)
  Sender: FDA-Public Use
  Company Number: PHHY2012TR021476

PATIENT
  Age: 12 Year
  Sex: Male
  Weight: 28 kg

DRUGS (1)
  1. ICL670A [Suspect]
     Indication: IRON OVERLOAD
     Dosage: 750 MG, PER DAY
     Route: 048
     Dates: start: 20090225, end: 20130604

REACTIONS (4)
  - Acidosis [Recovered/Resolved with Sequelae]
  - Otitis media [Recovering/Resolving]
  - Adenoidal hypertrophy [Recovering/Resolving]
  - Haemoglobin decreased [Unknown]
